FAERS Safety Report 11010878 (Version 4)
Quarter: 2017Q4

REPORT INFORMATION
  Report Type: Spontaneous
  Country: US (occurrence: US)
  Receive Date: 20150410
  Receipt Date: 20171218
  Transmission Date: 20180320
  Serious: Yes (Other)
  Sender: FDA-Public Use
  Company Number: US-PFIZER INC-2015123944

PATIENT
  Age: 58 Year
  Sex: Female
  Weight: 71.67 kg

DRUGS (21)
  1. ATORVASTATIN [Concomitant]
     Active Substance: ATORVASTATIN
     Indication: BLOOD CHOLESTEROL INCREASED
     Dosage: 40 MG, 1X/DAY
  2. DICLOFENAC [Concomitant]
     Active Substance: DICLOFENAC
     Indication: CARPAL TUNNEL SYNDROME
     Dosage: 75 MG, 2X/DAY
     Dates: start: 2012
  3. SINEMET [Concomitant]
     Active Substance: CARBIDOPA\LEVODOPA
     Indication: PARKINSON^S DISEASE
     Dosage: CARBIDOPA 25MG/ LEVODOPA 100MG, 5X/DAY (2 TAB 8AM, 1.5 NOON, 1.5 4PM, 1.5 8PM, 2 BEDTIME)
     Dates: start: 2008
  4. AZILECT [Concomitant]
     Active Substance: RASAGILINE MESYLATE
     Indication: PARKINSON^S DISEASE
     Dosage: 1 MG, 1X/DAY
     Dates: start: 2008
  5. PRAMIPEXOLE. [Concomitant]
     Active Substance: PRAMIPEXOLE
     Indication: PARKINSON^S DISEASE
     Dosage: UNK
  6. MELATONIN [Concomitant]
     Active Substance: MELATONIN
     Indication: SLEEP DISORDER
     Dosage: 5 MG, 1X/DAY
  7. RASAGILINE. [Concomitant]
     Active Substance: RASAGILINE
     Indication: PARKINSON^S DISEASE
     Dosage: UNK
  8. LYRICA [Suspect]
     Active Substance: PREGABALIN
     Indication: NEUROPATHY PERIPHERAL
     Dosage: 75 MG, 3X/DAY
     Route: 048
     Dates: start: 201407
  9. DICLOFENAC [Concomitant]
     Active Substance: DICLOFENAC
     Indication: TARSAL TUNNEL SYNDROME
  10. DICLOFENAC [Concomitant]
     Active Substance: DICLOFENAC
     Indication: PARKINSON^S DISEASE
  11. VITAMIN B12 [Concomitant]
     Active Substance: CYANOCOBALAMIN
     Indication: VITAMIN B12 DEFICIENCY
     Dosage: UNK UNK, MONTHLY
     Dates: start: 2012
  12. VITAMIN D [Concomitant]
     Active Substance: CHOLECALCIFEROL
     Indication: VITAMIN D DEFICIENCY
     Dosage: 1000 IU, 1X/DAY
     Dates: start: 20130208
  13. MIRAPEX ER [Concomitant]
     Active Substance: PRAMIPEXOLE DIHYDROCHLORIDE
     Indication: PARKINSON^S DISEASE
     Dosage: 3 MG, 1X/DAY
     Dates: start: 2011
  14. AMANTADINE. [Concomitant]
     Active Substance: AMANTADINE HYDROCHLORIDE
     Indication: DYSKINESIA
     Dosage: 100 MG, 1X/DAY (TAKE IT TWICE IF NEEDED)
     Dates: start: 201506
  15. TRAZODONE [Concomitant]
     Active Substance: TRAZODONE HYDROCHLORIDE
     Dosage: UNK
  16. LYRICA [Suspect]
     Active Substance: PREGABALIN
     Dosage: 100 MG, 3X/DAY
     Route: 048
     Dates: start: 201411
  17. MELATONIN [Concomitant]
     Active Substance: MELATONIN
     Dosage: 8 MG, 1X/DAY (AT BEDTIME)
  18. ALIVE [Concomitant]
     Indication: SUPPLEMENTATION THERAPY
     Dosage: UNK, 1X/DAY
  19. LIPITOR [Concomitant]
     Active Substance: ATORVASTATIN CALCIUM
     Indication: BLOOD CHOLESTEROL INCREASED
     Dosage: 40 MG, 1X/DAY
     Route: 048
  20. AMANTADINE. [Concomitant]
     Active Substance: AMANTADINE HYDROCHLORIDE
     Indication: PARKINSON^S DISEASE
  21. ASPIRIN. [Concomitant]
     Active Substance: ASPIRIN
     Indication: SUBCLAVIAN STEAL SYNDROME
     Dosage: 325 MG, 1X/DAY

REACTIONS (8)
  - Atrioventricular block [Unknown]
  - Pain in extremity [Unknown]
  - Fall [Unknown]
  - Muscular weakness [Unknown]
  - Subclavian steal syndrome [Not Recovered/Not Resolved]
  - Tricuspid valve incompetence [Not Recovered/Not Resolved]
  - Cerebrovascular accident [Unknown]
  - Parkinson^s disease [Unknown]

NARRATIVE: CASE EVENT DATE: 2015
